FAERS Safety Report 6479440-5 (Version None)
Quarter: 2009Q4

REPORT INFORMATION
  Report Type: 
  Country: None (occurrence: None)
  Receive Date: 20091207
  Receipt Date: 20090318
  Transmission Date: 20100525
  Serious: No
  Sender: FDA-Public Use
  Company Number: US-AMGEN-KDL336135

PATIENT
  Sex: Female

DRUGS (1)
  1. ENBREL [Suspect]
     Indication: RHEUMATOID ARTHRITIS
     Route: 058
     Dates: start: 20051120

REACTIONS (7)
  - BACK PAIN [None]
  - BURNING SENSATION [None]
  - DIARRHOEA [None]
  - GASTROENTERITIS VIRAL [None]
  - HEADACHE [None]
  - ORAL CANDIDIASIS [None]
  - VULVOVAGINAL PRURITUS [None]
